FAERS Safety Report 5266742-3 (Version None)
Quarter: 2007Q1

REPORT INFORMATION
  Report Type: 
  Country: None (occurrence: None)
  Receive Date: 20070305
  Receipt Date: 20070219
  Transmission Date: 20070707
  Serious: Yes (Other)
  Sender: FDA-Public Use
  Company Number: B0460137A

PATIENT
  Age: 10 Year
  Sex: Male

DRUGS (5)
  1. FLUTICASONE PROPIONATE [Suspect]
     Indication: ASTHMA
     Dosage: 110MCG, TWO PUFFS, TID, INHALED
     Route: 055
  2. TRIAMCINOLONE (FORMULATION UNKNOWN) (TRIAMCINOLONE) [Suspect]
     Indication: ASTHMA
     Dosage: 1 SPRAY, ONE SPRAY EACH NOSTRIL DAILY, INTRANASAL
     Route: 045
  3. PREDNISONE [Suspect]
     Indication: ASTHMA
     Dosage: 30 MG/ PER DAY
  4. SALMETEROL XINAFOATE [Concomitant]
  5. MONTELUKAST SODIUM [Concomitant]

REACTIONS (6)
  - ACNE [None]
  - ADRENAL SUPPRESSION [None]
  - ASTHMA [None]
  - CONDITION AGGRAVATED [None]
  - CUSHINGOID [None]
  - VIRAL UPPER RESPIRATORY TRACT INFECTION [None]
